FAERS Safety Report 24400061 (Version 1)
Quarter: 2024Q4

REPORT INFORMATION
  Report Type: Spontaneous
  Country: FR (occurrence: FR)
  Receive Date: 20241005
  Receipt Date: 20241005
  Transmission Date: 20250114
  Serious: Yes (Hospitalization, Other)
  Sender: AUROBINDO
  Company Number: FR-AFSSAPS-AM2024000783

PATIENT
  Age: 34 Year
  Sex: Female
  Weight: 60.8 kg

DRUGS (1)
  1. TERBINAFINE [Suspect]
     Active Substance: TERBINAFINE\TERBINAFINE HYDROCHLORIDE
     Indication: Dermatosis
     Dosage: 250 MILLIGRAM, ONCE A DAY
     Route: 048
     Dates: start: 20240615, end: 20240722

REACTIONS (1)
  - Polyarthritis [Recovering/Resolving]

NARRATIVE: CASE EVENT DATE: 20240717
